FAERS Safety Report 8516476-4 (Version None)
Quarter: 2012Q3

REPORT INFORMATION
  Report Type: 
  Country: None (occurrence: None)
  Receive Date: 20120718
  Receipt Date: 20120716
  Transmission Date: 20120928
  Serious: Yes (Other)
  Sender: FDA-Public Use
  Company Number: US-PFIZER INC-2012171546

PATIENT
  Sex: Female
  Weight: 58.503 kg

DRUGS (3)
  1. LYRICA [Suspect]
     Dosage: 50MG IN THE MORNING AND TWO 50MG AT NIGHT
     Route: 048
     Dates: start: 20120701
  2. LISINOPRIL [Concomitant]
     Indication: HYPERTENSION
     Dosage: 10 MG, UNK
  3. LYRICA [Suspect]
     Indication: HERPES ZOSTER
     Dosage: 50 MG, 2X/DAY
     Route: 048
     Dates: start: 20120713, end: 20120701

REACTIONS (2)
  - HYPERTENSION [None]
  - HEADACHE [None]
